FAERS Safety Report 13371050 (Version 1)
Quarter: 2017Q1

REPORT INFORMATION
  Report Type: Spontaneous
  Country: IT (occurrence: IT)
  Receive Date: 20170324
  Receipt Date: 20170324
  Transmission Date: 20170429
  Serious: Yes (Other)
  Sender: FDA-Public Use
  Company Number: IT-MYLANLABS-2017M1018154

PATIENT

DRUGS (1)
  1. ISOPTIN [Suspect]
     Active Substance: VERAPAMIL HYDROCHLORIDE
     Indication: MYOCARDIAL ISCHAEMIA
     Dosage: 2 DF, QD
     Route: 048
     Dates: start: 20170301, end: 20170301

REACTIONS (3)
  - Hypothermia [Recovered/Resolved]
  - Bradycardia [Recovered/Resolved]
  - Product substitution issue [Unknown]
